FAERS Safety Report 8736366 (Version 2)
Quarter: 2013Q1

REPORT INFORMATION
  Report Type: Report from Study
  Country: US (occurrence: US)
  Receive Date: 20120822
  Receipt Date: 20130306
  Transmission Date: 20140127
  Serious: Yes (Other)
  Sender: FDA-Public Use
  Company Number: US-JNJFOC-20120807337

PATIENT
  Sex: Male
  Weight: 83.46 kg

DRUGS (9)
  1. XARELTO [Suspect]
     Indication: CEREBROVASCULAR ACCIDENT PROPHYLAXIS
     Route: 048
     Dates: start: 201207, end: 20120813
  2. XARELTO [Suspect]
     Indication: ATRIAL FIBRILLATION
     Route: 048
     Dates: start: 201207, end: 20120813
  3. JANUMET [Concomitant]
     Indication: DIABETES MELLITUS
     Route: 048
     Dates: start: 2002
  4. UROXATRAL [Concomitant]
     Indication: BLADDER DISORDER
     Route: 048
     Dates: start: 2008
  5. DETROL LA [Concomitant]
     Indication: BLADDER DISORDER
     Route: 048
     Dates: start: 2008
  6. GLIPIZIDE XL [Concomitant]
     Indication: DIABETES MELLITUS
     Route: 048
     Dates: start: 2002
  7. LISINOPRIL [Concomitant]
     Indication: HYPERTENSION
     Route: 048
     Dates: start: 2011
  8. HCTZ [Concomitant]
     Indication: BLOOD PRESSURE
     Route: 048
     Dates: start: 2011
  9. CARVEDILOL [Concomitant]
     Indication: HYPERTENSION
     Route: 048
     Dates: start: 2011

REACTIONS (4)
  - Blood urine present [Not Recovered/Not Resolved]
  - Dyspepsia [Recovered/Resolved]
  - Cardioversion [Unknown]
  - Cystitis noninfective [Recovering/Resolving]
